FAERS Safety Report 12272006 (Version 1)
Quarter: 2016Q2

REPORT INFORMATION
  Report Type: Spontaneous
  Country: US (occurrence: US)
  Receive Date: 20160415
  Receipt Date: 20160415
  Transmission Date: 20160815
  Serious: No
  Sender: FDA-Public Use
  Company Number: US-FERRINGPH-2015FE01991

PATIENT
  Age: 70 Year
  Sex: Male
  Weight: 113.38 kg

DRUGS (1)
  1. FIRMAGON [Suspect]
     Active Substance: DEGARELIX ACETATE
     Indication: PROSTATE CANCER
     Dosage: 120 MG, ONCE/SINGLEMAINTENANCE DOSE
     Dates: start: 201505, end: 201505

REACTIONS (2)
  - Incorrect dose administered [Unknown]
  - Accidental overdose [Unknown]

NARRATIVE: CASE EVENT DATE: 201505
